FAERS Safety Report 10343048 (Version 2)
Quarter: 2014Q3

REPORT INFORMATION
  Report Type: Report from Study
  Country: US (occurrence: US)
  Receive Date: 20140725
  Receipt Date: 20140806
  Transmission Date: 20150326
  Serious: Yes (Hospitalization)
  Sender: FDA-Public Use
  Company Number: US-BRISTOL-MYERS SQUIBB COMPANY-21217849

PATIENT
  Age: 60 Year
  Sex: Female
  Weight: 57.96 kg

DRUGS (21)
  1. MULTIVITAMIN [Concomitant]
     Active Substance: VITAMINS
  2. NIACIN. [Concomitant]
     Active Substance: NIACIN
  3. VITAMIN D [Concomitant]
     Active Substance: CHOLECALCIFEROL
  4. VITAMIN C [Concomitant]
     Active Substance: ASCORBIC ACID
  5. CHROMIUM GTF [Concomitant]
  6. FISH OIL [Concomitant]
     Active Substance: FISH OIL
  7. ADVAIR HFA [Concomitant]
     Active Substance: FLUTICASONE PROPIONATE\SALMETEROL XINAFOATE
  8. MAGNESIUM [Concomitant]
     Active Substance: MAGNESIUM
  9. MANGANESE [Concomitant]
     Active Substance: MANGANESE\MANGANESE CHLORIDE
  10. SINGULAIR [Concomitant]
     Active Substance: MONTELUKAST SODIUM
  11. SYNTHROID [Concomitant]
     Active Substance: LEVOTHYROXINE SODIUM
  12. COPPER [Concomitant]
     Active Substance: COPPER
  13. ZINC [Concomitant]
     Active Substance: ZINC\ZINC CHLORIDE
  14. IPILIMUMAB [Suspect]
     Active Substance: IPILIMUMAB
     Dosage: LAST DOSE TAKEN : 05MAR14
     Route: 042
     Dates: start: 20140102
  15. PROBIOTICA [Concomitant]
     Active Substance: PROBIOTICS NOS
  16. AMBIEN [Concomitant]
     Active Substance: ZOLPIDEM TARTRATE
  17. LOMOTIL [Concomitant]
     Active Substance: ATROPINE SULFATE\DIPHENOXYLATE HYDROCHLORIDE
  18. PREDNISONE. [Concomitant]
     Active Substance: PREDNISONE
  19. VITAMIN B COMPLEX [Concomitant]
     Active Substance: CYANOCOBALAMIN\DEXPANTHENOL\NIACINAMIDE\PYRIDOXINE HYDROCHLORIDE\RIBOFLAVIN 5^-PHOSPHATE SODIUM\THIAMINE HYDROCHLORIDE\VITAMIN B COMPLEX
  20. CALCIUM [Concomitant]
     Active Substance: CALCIUM
  21. ALPHA LIPOIC ACID [Concomitant]
     Active Substance: .ALPHA.-LIPOIC ACID

REACTIONS (1)
  - Blood antidiuretic hormone abnormal [Recovered/Resolved]

NARRATIVE: CASE EVENT DATE: 20140715
